FAERS Safety Report 5354928-9 (Version None)
Quarter: 2007Q2

REPORT INFORMATION
  Report Type: 
  Country: None (occurrence: None)
  Receive Date: 20070516
  Receipt Date: 20060731
  Transmission Date: 20071010
  Serious: Yes (Other)
  Sender: FDA-Public Use
  Company Number: 2006093379

PATIENT
  Age: 35 Year
  Sex: Female

DRUGS (1)
  1. DEPO-PROVERA [Suspect]
     Indication: CONTRACEPTION
     Dosage: SEE IMAGE
     Route: 030

REACTIONS (11)
  - ANAEMIA [None]
  - ARTHRALGIA [None]
  - BONE DENSITY DECREASED [None]
  - FATIGUE [None]
  - LIBIDO DECREASED [None]
  - MIGRAINE [None]
  - MOOD SWINGS [None]
  - MUSCLE SPASMS [None]
  - NECK PAIN [None]
  - VAGINAL HAEMORRHAGE [None]
  - WEIGHT INCREASED [None]
